FAERS Safety Report 13313074 (Version 1)
Quarter: 2017Q1

REPORT INFORMATION
  Report Type: Report from Study
  Country: US (occurrence: MX)
  Receive Date: 20170309
  Receipt Date: 20170309
  Transmission Date: 20170428
  Serious: Yes (Death, Other)
  Sender: FDA-Public Use
  Company Number: US-SUNOVION-2017SUN001043

PATIENT
  Sex: Female

DRUGS (4)
  1. SPIRIVA [Concomitant]
     Active Substance: TIOTROPIUM BROMIDE MONOHYDRATE
     Dosage: UNK
  2. ATACAND [Concomitant]
     Active Substance: CANDESARTAN CILEXETIL
     Indication: HYPERTENSION
     Dosage: UNK
  3. INDACATEROL [Suspect]
     Active Substance: INDACATEROL
     Indication: CHRONIC OBSTRUCTIVE PULMONARY DISEASE
     Dosage: 150 ?G, QD
     Route: 055
     Dates: start: 2010
  4. DIURETICS [Concomitant]
     Active Substance: UNSPECIFIED INGREDIENT
     Dosage: UNK

REACTIONS (12)
  - Death [Fatal]
  - Abdominal hernia [Unknown]
  - Dyspnoea [Unknown]
  - Inflammation [Unknown]
  - Productive cough [Unknown]
  - Insomnia [Recovering/Resolving]
  - Fluid retention [Unknown]
  - Cough [Unknown]
  - Bone pain [Not Recovered/Not Resolved]
  - Renal failure [Unknown]
  - Bronchitis [Unknown]
  - Nausea [Not Recovered/Not Resolved]

NARRATIVE: CASE EVENT DATE: 2012
